FAERS Safety Report 12299306 (Version 2)
Quarter: 2017Q4

REPORT INFORMATION
  Report Type: Spontaneous
  Country: RU (occurrence: RU)
  Receive Date: 20160425
  Receipt Date: 20171219
  Transmission Date: 20180320
  Serious: Yes (Other)
  Sender: FDA-Public Use
  Company Number: RU-ROCHE-1746021

PATIENT

DRUGS (2)
  1. ACTEMRA [Suspect]
     Active Substance: TOCILIZUMAB
     Indication: STILL^S DISEASE
     Route: 065
  2. RITUXIMAB. [Suspect]
     Active Substance: RITUXIMAB
     Indication: STILL^S DISEASE
     Route: 065

REACTIONS (9)
  - Histiocytosis haematophagic [Unknown]
  - Thrombocytopenia [Unknown]
  - Neutropenia [Unknown]
  - Hypercholesterolaemia [Unknown]
  - Transaminases increased [Unknown]
  - Leukopenia [Unknown]
  - Hyperbilirubinaemia [Unknown]
  - Infection [Unknown]
  - Infusion related reaction [Unknown]
